FAERS Safety Report 9805349 (Version 1)
Quarter: 2014Q1

REPORT INFORMATION
  Report Type: Report from Study
  Country: SE (occurrence: SE)
  Receive Date: 20140109
  Receipt Date: 20140109
  Transmission Date: 20141002
  Serious: Yes (Hospitalization)
  Sender: FDA-Public Use
  Company Number: SE-JNJFOC-20140103345

PATIENT
  Sex: Male

DRUGS (4)
  1. RIVAROXABAN [Suspect]
     Indication: EMBOLISM VENOUS
     Route: 048
     Dates: start: 20131219, end: 20131230
  2. RIVAROXABAN [Suspect]
     Indication: DEEP VEIN THROMBOSIS
     Route: 048
     Dates: start: 20131219, end: 20131230
  3. HEPARIN [Concomitant]
     Indication: PRODUCT USED FOR UNKNOWN INDICATION
     Route: 065
     Dates: start: 20131231
  4. HEPARIN [Concomitant]
     Indication: PRODUCT USED FOR UNKNOWN INDICATION
     Route: 065
     Dates: start: 20131211, end: 20131218

REACTIONS (1)
  - Abdominal pain [Recovered/Resolved]
